FAERS Safety Report 14277785 (Version 5)
Quarter: 2018Q2

REPORT INFORMATION
  Report Type: Report from Study
  Country: JP (occurrence: JP)
  Receive Date: 20171212
  Receipt Date: 20180622
  Transmission Date: 20180711
  Serious: Yes (Life-Threatening, Disabling, Other)
  Sender: FDA-Public Use
  Company Number: JP-B.I. PHARMACEUTICALS,INC./RIDGEFIELD-2017-NB-006135

PATIENT
  Age: 67 Year
  Sex: Male
  Weight: 96 kg

DRUGS (7)
  1. PRAZAXA [Suspect]
     Active Substance: DABIGATRAN ETEXILATE MESYLATE
     Route: 048
     Dates: start: 20171028
  2. ENALAPRIL MALEATE. [Concomitant]
     Active Substance: ENALAPRIL MALEATE
     Indication: PRODUCT USED FOR UNKNOWN INDICATION
     Route: 065
     Dates: end: 20171011
  3. PRAZAXA [Suspect]
     Active Substance: DABIGATRAN ETEXILATE MESYLATE
     Indication: ATRIAL FIBRILLATION
     Route: 048
     Dates: start: 2015, end: 20171011
  4. BISOPROLOL FUMARATE. [Concomitant]
     Active Substance: BISOPROLOL FUMARATE
     Indication: PRODUCT USED FOR UNKNOWN INDICATION
     Route: 065
     Dates: end: 20171011
  5. CILNIDIPINE [Concomitant]
     Active Substance: CILNIDIPINE
     Indication: PRODUCT USED FOR UNKNOWN INDICATION
     Route: 065
     Dates: end: 20171011
  6. ZETIA [Concomitant]
     Active Substance: EZETIMIBE
     Indication: PRODUCT USED FOR UNKNOWN INDICATION
     Route: 065
     Dates: end: 20171011
  7. ALLOPURINOL. [Concomitant]
     Active Substance: ALLOPURINOL
     Indication: PRODUCT USED FOR UNKNOWN INDICATION
     Route: 065
     Dates: end: 20171011

REACTIONS (3)
  - Aortic aneurysm rupture [Recovered/Resolved with Sequelae]
  - Leg amputation [Unknown]
  - Thrombosis [Unknown]

NARRATIVE: CASE EVENT DATE: 20171009
